FAERS Safety Report 5511328-6 (Version None)
Quarter: 2007Q4

REPORT INFORMATION
  Report Type: 
  Country: None (occurrence: None)
  Receive Date: 20071109
  Receipt Date: 20070912
  Transmission Date: 20080405
  Serious: No
  Sender: FDA-Public Use
  Company Number: A0676983A

PATIENT
  Age: 17 Year
  Sex: Female
  Weight: 68.2 kg

DRUGS (2)
  1. ALTABAX [Suspect]
     Dosage: 1APP UNKNOWN
     Route: 061
     Dates: start: 20070826, end: 20070826
  2. BIRTH CONTROL PILLS [Concomitant]

REACTIONS (5)
  - BURNING SENSATION [None]
  - CROSS SENSITIVITY REACTION [None]
  - ERYTHEMA [None]
  - INFLAMMATION [None]
  - PETECHIAE [None]
